FAERS Safety Report 8279206-X (Version None)
Quarter: 2012Q2

REPORT INFORMATION
  Report Type: 
  Country: None (occurrence: None)
  Receive Date: 20120412
  Receipt Date: 20110316
  Transmission Date: 20120825
  Serious: No
  Sender: FDA-Public Use
  Company Number: US-ASTRAZENECA-2010SE35637

PATIENT
  Age: 32 Year
  Sex: Female

DRUGS (2)
  1. PRILOSEC [Suspect]
     Route: 048
  2. NEXIUM [Suspect]
     Route: 048

REACTIONS (4)
  - PAIN [None]
  - VOMITING [None]
  - DRUG DOSE OMISSION [None]
  - MATERNAL EXPOSURE DURING PREGNANCY [None]
